FAERS Safety Report 8340943-X (Version None)
Quarter: 2012Q2

REPORT INFORMATION
  Report Type: 
  Country: None (occurrence: None)
  Receive Date: 20120330
  Receipt Date: 20120308
  Transmission Date: 20120825
  Serious: Yes (Other)
  Sender: FDA-Public Use
  Company Number: ADE 12-002

PATIENT
  Age: 68 Year
  Sex: Male
  Weight: 72.1 kg

DRUGS (1)
  1. CIPROFLOXACIN IN DEXTROSE 5% [Suspect]
     Dosage: 400MG/200ML, ONCE, IV
     Route: 042
     Dates: start: 20120224

REACTIONS (3)
  - RASH [None]
  - INFUSION SITE REACTION [None]
  - PHLEBITIS [None]
